FAERS Safety Report 21619618 (Version 1)
Quarter: 2022Q4

REPORT INFORMATION
  Report Type: Spontaneous
  Country: US (occurrence: US)
  Receive Date: 20221121
  Receipt Date: 20221121
  Transmission Date: 20230112
  Serious: Yes (Other)
  Sender: FDA-Public Use
  Company Number: US-LUPIN PHARMACEUTICALS INC.-2022-13575

PATIENT
  Age: 73 Year
  Sex: Male

DRUGS (3)
  1. CEPHALEXIN [Suspect]
     Active Substance: CEPHALEXIN
     Indication: Extramammary Paget^s disease
     Dosage: UNK
     Route: 048
  2. HYDROCORTISONE VALERATE [Suspect]
     Active Substance: HYDROCORTISONE VALERATE
     Indication: Extramammary Paget^s disease
     Dosage: UNK, HYDROCORTISONE 1% CREAM
     Route: 061
  3. ECONAZOLE [Suspect]
     Active Substance: ECONAZOLE
     Indication: Extramammary Paget^s disease
     Dosage: UNK
     Route: 061

REACTIONS (2)
  - Drug ineffective for unapproved indication [Unknown]
  - Off label use [Unknown]
